FAERS Safety Report 8459334-6 (Version None)
Quarter: 2012Q2

REPORT INFORMATION
  Report Type: 
  Country: None (occurrence: None)
  Receive Date: 20120622
  Receipt Date: 20120619
  Transmission Date: 20120825
  Serious: No
  Sender: FDA-Public Use
  Company Number: US-BAYER-2012-061060

PATIENT
  Age: 68 Year
  Sex: Male

DRUGS (7)
  1. QUINAPRIL [Concomitant]
  2. RYTHMOL [Concomitant]
  3. VALIUM [Concomitant]
     Dosage: 10 MG, UNK
  4. BLOOD THINNER [Concomitant]
  5. STAXYN [Suspect]
     Indication: ERECTILE DYSFUNCTION
     Dosage: 10 MG, UNK
     Route: 048
     Dates: start: 20120619, end: 20120619
  6. OMEPRAZOLE [Concomitant]
  7. ASPIRIN [Concomitant]

REACTIONS (1)
  - ERECTILE DYSFUNCTION [None]
